FAERS Safety Report 18451673 (Version 3)
Quarter: 2022Q3

REPORT INFORMATION
  Report Type: Spontaneous
  Country: JP (occurrence: JP)
  Receive Date: 20201102
  Receipt Date: 20220713
  Transmission Date: 20221027
  Serious: No
  Sender: FDA-Public Use
  Company Number: JP-GSKNCCC-CASE-01055457_AE-35329

PATIENT

DRUGS (9)
  1. TRELEGY ELLIPTA [Suspect]
     Active Substance: FLUTICASONE FUROATE\UMECLIDINIUM BROMIDE\VILANTEROL TRIFENATATE
     Dosage: 100 ?G, QD
     Route: 055
  2. BISOPROLOL FUMARATE TABLET [Concomitant]
     Dosage: 0.625 MG, QD
  3. WARFARIN POTASSIUM [Concomitant]
     Active Substance: WARFARIN POTASSIUM
     Dosage: 3 DF, QD
  4. LANSOPRAZOLE-OD TABLETS [Concomitant]
     Dosage: 15 MG, QD
  5. BICALUTAMIDE [Concomitant]
     Active Substance: BICALUTAMIDE
     Dosage: 80 MG, QD
  6. TAMSULOSIN HYDROCHLORIDE [Concomitant]
     Active Substance: TAMSULOSIN HYDROCHLORIDE
     Dosage: 0.2 MG, QD
  7. FEBUXOSTAT [Concomitant]
     Active Substance: FEBUXOSTAT
     Dosage: 10 MG, QD
  8. BETANIS TABLETS [Concomitant]
     Dosage: 50 MG, QD
  9. BILANOA TABLET [Concomitant]
     Dosage: 1 DF, QD

REACTIONS (2)
  - Dyspnoea [Recovered/Resolved]
  - Product complaint [Unknown]

NARRATIVE: CASE EVENT DATE: 20201001
